FAERS Safety Report 5565058-5 (Version None)
Quarter: 2007Q4

REPORT INFORMATION
  Report Type: 
  Country: None (occurrence: None)
  Receive Date: 20071212
  Receipt Date: 20071206
  Transmission Date: 20080405
  Serious: Yes (Death)
  Sender: FDA-Public Use
  Company Number: E2020-01971-SPO-JP

PATIENT
  Age: 80 Year
  Sex: Male
  Weight: 50 kg

DRUGS (5)
  1. ARICEPT [Suspect]
     Indication: DEMENTIA ALZHEIMER'S TYPE
     Dosage: 3 MG, 1 IN 1 D, ORAL
     Route: 048
     Dates: start: 20070914, end: 20070915
  2. VOLTAREN (DICLOFENAC SODIUCM) [Concomitant]
  3. COOLSPAN (SULPIRIDE) [Concomitant]
  4. DEPAS (ETIZOLAM) [Concomitant]
  5. NITRAZEPAM [Concomitant]

REACTIONS (6)
  - CYANOSIS [None]
  - DEPRESSED LEVEL OF CONSCIOUSNESS [None]
  - MYDRIASIS [None]
  - RESPIRATORY ARREST [None]
  - SOMNOLENCE [None]
  - SUDDEN DEATH [None]
